FAERS Safety Report 4866243-8 (Version None)
Quarter: 2005Q4

REPORT INFORMATION
  Report Type: 
  Country: None (occurrence: None)
  Receive Date: 20051227
  Receipt Date: 20051120
  Transmission Date: 20060501
  Serious: Yes (Other)
  Sender: FDA-Public Use
  Company Number: JP-SP-2005-02704

PATIENT
  Age: 76 Year
  Sex: Male

DRUGS (3)
  1. IMMUCYST [Suspect]
     Indication: BLADDER CANCER
     Route: 043
     Dates: start: 20051114
  2. PROPIVERINE HYDROCHLORIDE [Concomitant]
     Indication: POLLAKIURIA
     Route: 048
     Dates: start: 20051108
  3. CEFCAPENE PIVOXIL HYDROCHLORIDE [Concomitant]
     Dates: start: 20051105, end: 20051115

REACTIONS (1)
  - URINARY RETENTION [None]
